FAERS Safety Report 10669845 (Version 1)
Quarter: 2014Q4

REPORT INFORMATION
  Report Type: Spontaneous
  Country: US (occurrence: US)
  Receive Date: 20141222
  Receipt Date: 20141222
  Transmission Date: 20150529
  Serious: Yes (Other)
  Sender: FDA-Public Use
  Company Number: US-ELI_LILLY_AND_COMPANY-US201412007731

PATIENT
  Sex: Female

DRUGS (2)
  1. HUMULIN N [Suspect]
     Active Substance: INSULIN HUMAN
     Indication: TYPE 1 DIABETES MELLITUS
     Dosage: UNK
     Route: 065
     Dates: start: 200802
  2. HUMULIN N [Suspect]
     Active Substance: INSULIN HUMAN
     Dosage: 34 U, BID
     Route: 065
     Dates: start: 20141203

REACTIONS (9)
  - Hypertrichosis [Unknown]
  - Gait disturbance [Unknown]
  - Vision blurred [Unknown]
  - Bronchial hyperreactivity [Unknown]
  - Malaise [Unknown]
  - Cerebrovascular accident [Unknown]
  - Myalgia [Unknown]
  - Blood glucose increased [Unknown]
  - Anaemia [Unknown]

NARRATIVE: CASE EVENT DATE: 2008
